FAERS Safety Report 17665488 (Version 1)
Quarter: 2020Q2

REPORT INFORMATION
  Report Type: Spontaneous
  Country: MX (occurrence: MX)
  Receive Date: 20200414
  Receipt Date: 20200414
  Transmission Date: 20200713
  Serious: No
  Sender: FDA-Public Use
  Company Number: MX-TOLMAR, INC.-19MX000662

PATIENT
  Age: 55 Year
  Sex: Male

DRUGS (1)
  1. ELIGARD [Suspect]
     Active Substance: LEUPROLIDE ACETATE
     Indication: PROSTATE CANCER
     Dosage: 45 MG, CYCLIC
     Route: 065

REACTIONS (2)
  - Intercepted medication error [None]
  - Needle issue [None]

NARRATIVE: CASE EVENT DATE: 20190828
